FAERS Safety Report 8299979-X (Version None)
Quarter: 2012Q2

REPORT INFORMATION
  Report Type: 
  Country: None (occurrence: None)
  Receive Date: 20120420
  Receipt Date: 20120411
  Transmission Date: 20120825
  Serious: No
  Sender: FDA-Public Use
  Company Number: US-BIOGENIDEC-2012BI012968

PATIENT
  Sex: Female

DRUGS (2)
  1. TYSABRI [Suspect]
     Indication: MULTIPLE SCLEROSIS
     Route: 042
     Dates: end: 20120105
  2. TYSABRI [Suspect]
     Route: 042
     Dates: start: 20120402

REACTIONS (16)
  - PANIC ATTACK [None]
  - DISORIENTATION [None]
  - ABASIA [None]
  - CHEST PAIN [None]
  - HEADACHE [None]
  - ANXIETY [None]
  - GAIT DISTURBANCE [None]
  - ABDOMINAL DISCOMFORT [None]
  - INITIAL INSOMNIA [None]
  - GASTROINTESTINAL DISORDER [None]
  - DIZZINESS [None]
  - MUSCLE TWITCHING [None]
  - VISION BLURRED [None]
  - CHEST DISCOMFORT [None]
  - VISUAL IMPAIRMENT [None]
  - MULTIPLE SCLEROSIS RELAPSE [None]
